FAERS Safety Report 6307126-6 (Version None)
Quarter: 2009Q3

REPORT INFORMATION
  Report Type: 
  Country: None (occurrence: None)
  Receive Date: 20090812
  Receipt Date: 20090803
  Transmission Date: 20100115
  Serious: Yes (Hospitalization)
  Sender: FDA-Public Use
  Company Number: JP-SANOFI-SYNTHELABO-D01200904742

PATIENT
  Sex: Male
  Weight: 61 kg

DRUGS (9)
  1. IMIDAPRIL HYDROCHLORIDE [Concomitant]
     Dosage: 5 MG
     Route: 065
     Dates: start: 20090211
  2. AMLODIN [Concomitant]
     Dosage: 5 MG
     Route: 048
     Dates: start: 20090211
  3. CLOPIDOGREL [Suspect]
     Indication: ANGINA PECTORIS
     Dosage: 75 MG
     Route: 048
  4. CLOPIDOGREL [Suspect]
     Indication: MYOCARDIAL INFARCTION
     Dosage: 75 MG
     Route: 048
  5. 2 DAYS PLACEBO FOLLOWED BY CLOPIDOGREL VS TICLOPIDINE [Suspect]
     Indication: ANGINA PECTORIS
     Dosage: 2 DAYS PLACEBO FOLLOWED BY LOADING DOSE 300MG FOLLOWED BY 75MG DAILY
     Route: 048
     Dates: start: 20090212, end: 20090507
  6. 2 DAYS PLACEBO FOLLOWED BY CLOPIDOGREL VS TICLOPIDINE [Suspect]
     Indication: MYOCARDIAL INFARCTION
     Dosage: 2 DAYS PLACEBO FOLLOWED BY LOADING DOSE 300MG FOLLOWED BY 75MG DAILY
     Route: 048
     Dates: start: 20090212, end: 20090507
  7. 2 DAYS PLACEBO FOLLOWED BY CLOPIDOGREL VS TICLOPIDINE [Suspect]
     Route: 048
  8. 2 DAYS PLACEBO FOLLOWED BY CLOPIDOGREL VS TICLOPIDINE [Suspect]
     Route: 048
  9. ASPIRIN [Concomitant]
     Dosage: 100 MG
     Dates: start: 20090212

REACTIONS (4)
  - HAEMATOCRIT DECREASED [None]
  - HAEMOGLOBIN DECREASED [None]
  - MALLORY-WEISS SYNDROME [None]
  - SYNCOPE [None]
